FAERS Safety Report 23127966 (Version 11)
Quarter: 2024Q3

REPORT INFORMATION
  Report Type: Report from Study
  Country: ES (occurrence: ES)
  Receive Date: 20231031
  Receipt Date: 20240722
  Transmission Date: 20241017
  Serious: Yes (Hospitalization)
  Sender: ROCHE
  Company Number: ES-CELLTRION HEALTHCARE HUNGARY KFT-2023ES020390

PATIENT
  Age: 71 Year
  Sex: Female
  Weight: 70 kg

DRUGS (38)
  1. RITUXIMAB [Suspect]
     Active Substance: RITUXIMAB
     Indication: Follicular lymphoma
     Dosage: CONCENTRATE FOR SOLUTION FOR INFUSION
     Route: 042
  2. RITUXIMAB [Suspect]
     Active Substance: RITUXIMAB
     Dosage: 694 MG, CYCLIC, (375 MH/SQ.M) FOR 5 CYCLES
     Route: 042
     Dates: start: 20230720
  3. RITUXIMAB [Suspect]
     Active Substance: RITUXIMAB
     Dosage: LAST DOSES OF INCMOR00208/PLACEBO, LENALIDOMIDE AND RITUXIMAB, PRIOR TO THE SAE WAS TAKEN ON 02/OCT/
     Route: 042
     Dates: start: 20231002
  4. RITUXIMAB [Suspect]
     Active Substance: RITUXIMAB
     Dosage: INCMOR00208/PLACEBO AND RITUXIMAB PRIOR TO THE SAE OF FEVER WERE TAKEN ON 09/NOV/2023
     Route: 042
     Dates: start: 20231109, end: 20231113
  5. RITUXIMAB [Suspect]
     Active Substance: RITUXIMAB
     Route: 042
     Dates: end: 20231002
  6. RITUXIMAB [Suspect]
     Active Substance: RITUXIMAB
     Dosage: THE LAST DOSES OF INCMOR00208/PLACEBO, RITUXIMAB AND LENALIDOMIDE WERE TAKEN ON AN UNSPECIFIED DATE.
     Route: 042
  7. RITUXIMAB [Suspect]
     Active Substance: RITUXIMAB
     Dosage: 375 MG/M2, 5 CYCLE
     Route: 042
  8. RITUXIMAB [Suspect]
     Active Substance: RITUXIMAB
     Dosage: LAST DOSE OF RITUXIMAB PRIOR TO THE SERIOUS ADVERSE EVENT (SAE)
     Route: 042
     Dates: start: 20230915
  9. RITUXIMAB [Suspect]
     Active Substance: RITUXIMAB
     Route: 042
     Dates: start: 20231011
  10. RITUXIMAB [Suspect]
     Active Substance: RITUXIMAB
     Dosage: THE LAST DOSES OF INCMOR00208/PLACEBO, RITUXIMAB AND LENALIDOMIDE WERE TAKEN ON AN UNSPECIFIED DATE.
     Route: 042
  11. LENALIDOMIDE [Suspect]
     Active Substance: LENALIDOMIDE
     Indication: Follicular lymphoma
     Route: 065
     Dates: start: 20230720, end: 20230924
  12. LENALIDOMIDE [Suspect]
     Active Substance: LENALIDOMIDE
     Dosage: 20 MG QD ON DAYS 1 TO 21 FOR 12 CYCLES
     Route: 065
  13. LENALIDOMIDE [Suspect]
     Active Substance: LENALIDOMIDE
     Route: 065
     Dates: start: 20231207, end: 20231219
  14. LENALIDOMIDE [Suspect]
     Active Substance: LENALIDOMIDE
     Route: 065
     Dates: start: 20231116, end: 20231122
  15. LENALIDOMIDE [Suspect]
     Active Substance: LENALIDOMIDE
     Route: 065
     Dates: start: 20230923
  16. LENALIDOMIDE [Suspect]
     Active Substance: LENALIDOMIDE
     Route: 065
     Dates: start: 20231120
  17. LENALIDOMIDE [Suspect]
     Active Substance: LENALIDOMIDE
     Route: 065
  18. LENALIDOMIDE [Suspect]
     Active Substance: LENALIDOMIDE
     Route: 065
     Dates: start: 20231109, end: 20231112
  19. LENALIDOMIDE [Suspect]
     Active Substance: LENALIDOMIDE
     Route: 065
  20. LENALIDOMIDE [Suspect]
     Active Substance: LENALIDOMIDE
     Route: 065
     Dates: start: 20231002
  21. LENALIDOMIDE [Suspect]
     Active Substance: LENALIDOMIDE
     Route: 065
     Dates: start: 20230720, end: 20231002
  22. LENALIDOMIDE [Suspect]
     Active Substance: LENALIDOMIDE
     Route: 065
     Dates: start: 20240118
  23. TAFASITAMAB-CXIX [Suspect]
     Active Substance: TAFASITAMAB-CXIX
     Indication: Follicular lymphoma
     Route: 065
     Dates: start: 20230720
  24. TAFASITAMAB-CXIX [Suspect]
     Active Substance: TAFASITAMAB-CXIX
     Route: 065
  25. TAFASITAMAB-CXIX [Suspect]
     Active Substance: TAFASITAMAB-CXIX
     Route: 065
     Dates: start: 20231002
  26. TAFASITAMAB-CXIX [Suspect]
     Active Substance: TAFASITAMAB-CXIX
     Dosage: LAST DOSE PRIOR TO THE SERIOUS ADVERSE EVENT
     Route: 065
     Dates: start: 20231109, end: 20231113
  27. TAFASITAMAB-CXIX [Suspect]
     Active Substance: TAFASITAMAB-CXIX
     Dosage: UNK
     Route: 065
     Dates: start: 20231122
  28. TAFASITAMAB-CXIX [Suspect]
     Active Substance: TAFASITAMAB-CXIX
     Dosage: UNK
     Route: 065
     Dates: start: 20231207, end: 20231220
  29. TAFASITAMAB-CXIX [Suspect]
     Active Substance: TAFASITAMAB-CXIX
     Route: 065
     Dates: start: 20231011
  30. TAFASITAMAB-CXIX [Suspect]
     Active Substance: TAFASITAMAB-CXIX
     Dosage: UNK
     Route: 065
     Dates: end: 20230928
  31. TAFASITAMAB-CXIX [Suspect]
     Active Substance: TAFASITAMAB-CXIX
     Dosage: UNK
     Route: 065
     Dates: start: 20230922
  32. TAFASITAMAB-CXIX [Suspect]
     Active Substance: TAFASITAMAB-CXIX
     Dosage: THE LAST DOSES OF INCMOR00208/PLACEBO, RITUXIMAB AND LENALIDOMIDE WERE TAKEN ON AN UNSPECIFIED DATE
     Route: 065
  33. TAFASITAMAB-CXIX [Suspect]
     Active Substance: TAFASITAMAB-CXIX
     Dosage: UNK
     Route: 065
     Dates: end: 20231002
  34. TAFASITAMAB-CXIX [Suspect]
     Active Substance: TAFASITAMAB-CXIX
     Route: 065
     Dates: start: 20240119
  35. PNEUMOCOCCAL VACCINE POLYVALENT NOS [Concomitant]
     Active Substance: PNEUMOCOCCAL VACCINE POLYVALENT
     Route: 065
     Dates: start: 20240306, end: 20240306
  36. VARICELLA-ZOSTER VIRUS STRAIN OKA/MERCK LIVE ANTIGEN [Concomitant]
     Active Substance: VARICELLA-ZOSTER VIRUS STRAIN OKA/MERCK LIVE ANTIGEN
  37. LEVOFLOXACIN [Concomitant]
     Active Substance: LEVOFLOXACIN
     Dosage: UNK
     Dates: start: 20230917, end: 20230924
  38. LEVOFLOXACIN [Concomitant]
     Active Substance: LEVOFLOXACIN
     Dosage: UNK
     Dates: start: 20230924, end: 20230924

REACTIONS (3)
  - Pneumonia [Recovered/Resolved]
  - COVID-19 pneumonia [Recovered/Resolved]
  - Respiratory tract infection [Recovered/Resolved]

NARRATIVE: CASE EVENT DATE: 20230924
